FAERS Safety Report 13817543 (Version 1)
Quarter: 2017Q3

REPORT INFORMATION
  Report Type: Spontaneous
  Country: US (occurrence: US)
  Receive Date: 20170731
  Receipt Date: 20170731
  Transmission Date: 20171127
  Serious: Yes (Hospitalization)
  Sender: FDA-Public Use
  Company Number: US-CELGENEUS-USA-20170706767

PATIENT
  Sex: Female

DRUGS (6)
  1. THALOMID [Suspect]
     Active Substance: THALIDOMIDE
     Dosage: 200 MILLIGRAM
     Route: 048
     Dates: start: 201611, end: 2017
  2. THALOMID [Suspect]
     Active Substance: THALIDOMIDE
     Dosage: 50-200 MG
     Route: 048
     Dates: start: 200706
  3. THALOMID [Suspect]
     Active Substance: THALIDOMIDE
     Dosage: 100 MILLIGRAM
     Route: 048
     Dates: start: 201212
  4. THALOMID [Suspect]
     Active Substance: THALIDOMIDE
     Dosage: 100 MILLIGRAM
     Route: 048
     Dates: start: 201307
  5. THALOMID [Suspect]
     Active Substance: THALIDOMIDE
     Dosage: 100 MILLIGRAM
     Route: 048
     Dates: start: 200509
  6. THALOMID [Suspect]
     Active Substance: THALIDOMIDE
     Indication: LYMPHOMA
     Dosage: 200 MILLIGRAM
     Route: 048
     Dates: start: 200503

REACTIONS (1)
  - Condition aggravated [Unknown]
